FAERS Safety Report 23419583 (Version 1)
Quarter: 2024Q1

REPORT INFORMATION
  Report Type: Spontaneous
  Country: CN (occurrence: None)
  Receive Date: 20240118
  Receipt Date: 20240118
  Transmission Date: 20240409
  Serious: Yes (Other)
  Sender: FDA-Public Use
  Company Number: 2024A012392

PATIENT
  Age: 59 Year
  Sex: Female
  Weight: 65 kg

DRUGS (1)
  1. LYNPARZA [Suspect]
     Active Substance: OLAPARIB
     Indication: Prophylaxis
     Route: 048
     Dates: start: 20231225, end: 20240112

REACTIONS (5)
  - Myelosuppression [Unknown]
  - Vertigo [Unknown]
  - Anaemia [Unknown]
  - Dizziness [Unknown]
  - Neutropenia [Unknown]

NARRATIVE: CASE EVENT DATE: 20240109
